FAERS Safety Report 20359381 (Version 1)
Quarter: 2022Q1

REPORT INFORMATION
  Report Type: Spontaneous
  Country: US (occurrence: US)
  Receive Date: 20220121
  Receipt Date: 20220121
  Transmission Date: 20220424
  Serious: Yes (Other)
  Sender: FDA-Public Use
  Company Number: US-CELGENE-USA-20220104784

PATIENT
  Sex: Female
  Weight: 55.842 kg

DRUGS (1)
  1. REVLIMID [Suspect]
     Active Substance: LENALIDOMIDE
     Indication: Plasma cell myeloma
     Dosage: 10 MG
     Route: 048
     Dates: start: 20210522

REACTIONS (3)
  - Neuropathy peripheral [Recovering/Resolving]
  - Blood potassium decreased [Recovering/Resolving]
  - Infection [Recovering/Resolving]
